FAERS Safety Report 17207218 (Version 5)
Quarter: 2020Q1

REPORT INFORMATION
  Report Type: Report from Study
  Country: MX (occurrence: MX)
  Receive Date: 20191227
  Receipt Date: 20200130
  Transmission Date: 20200409
  Serious: Yes (Other)
  Sender: FDA-Public Use
  Company Number: PHHY2018MX127574

PATIENT
  Age: 58 Year
  Sex: Female
  Weight: 98 kg

DRUGS (2)
  1. EXFORGE HCT [Suspect]
     Active Substance: AMLODIPINE BESYLATE\HYDROCHLOROTHIAZIDE\VALSARTAN
     Indication: HYPERTENSION
     Dosage: 1 DF (AMLODIPINE 10MG, HYDROCHLOROTHIAZIDE 25MG, VALSARTAN 320MG), QD
     Route: 048
  2. EXFORGE HCT [Suspect]
     Active Substance: AMLODIPINE BESYLATE\HYDROCHLOROTHIAZIDE\VALSARTAN
     Dosage: 2 DF (AMLODIPINE 10MG, HYDROCHLOROTHIAZIDE 25MG, VALSARTAN 320MG), QD, SOMETIMES 2 WHEN HER PRESSURE
     Route: 048

REACTIONS (20)
  - Post procedural complication [Unknown]
  - Dyschezia [Unknown]
  - Inguinal hernia [Recovering/Resolving]
  - Inguinal hernia [Recovered/Resolved]
  - Dyspepsia [Unknown]
  - Blood pressure abnormal [Unknown]
  - Headache [Unknown]
  - Incorrect dose administered [Unknown]
  - Urinary incontinence [Recovered/Resolved]
  - Pain in extremity [Not Recovered/Not Resolved]
  - Inguinal hernia [Recovered/Resolved]
  - Peripheral swelling [Recovering/Resolving]
  - Abdominal hernia [Unknown]
  - Accident [Unknown]
  - Micturition urgency [Unknown]
  - Pelvic discomfort [Unknown]
  - Wheezing [Unknown]
  - Abdominal hernia [Recovered/Resolved]
  - Pneumonia [Unknown]
  - Chest pain [Unknown]

NARRATIVE: CASE EVENT DATE: 20181003
